FAERS Safety Report 7714503-5 (Version None)
Quarter: 2011Q3

REPORT INFORMATION
  Report Type: 
  Country: None (occurrence: None)
  Receive Date: 20110829
  Receipt Date: 20110817
  Transmission Date: 20111222
  Serious: Yes (Hospitalization)
  Sender: FDA-Public Use
  Company Number: US-BAYER-2011-023461

PATIENT
  Age: 44 Year
  Sex: Female
  Weight: 77 kg

DRUGS (4)
  1. YASMIN [Suspect]
     Indication: ORAL CONTRACEPTION
     Dosage: UNK
     Dates: start: 20050801, end: 20051101
  2. YAZ [Suspect]
     Indication: ORAL CONTRACEPTION
     Dosage: UNK
     Dates: start: 20080501, end: 20091201
  3. LUNESTA [Concomitant]
     Indication: INSOMNIA
     Dosage: UNK
     Dates: start: 20070101, end: 20090101
  4. AZITHROMYCIN [Concomitant]
     Indication: INFECTION
     Dosage: 250 MG, UNK
     Dates: start: 20090227

REACTIONS (13)
  - ABDOMINAL DISTENSION [None]
  - PAIN [None]
  - ANXIETY [None]
  - FLATULENCE [None]
  - CONSTIPATION [None]
  - CHOLECYSTITIS CHRONIC [None]
  - SCAR [None]
  - INJURY [None]
  - DYSPEPSIA [None]
  - DIARRHOEA [None]
  - GALLBLADDER DISORDER [None]
  - DEPRESSION [None]
  - CHOLELITHIASIS [None]
